FAERS Safety Report 23484145 (Version 1)
Quarter: 2024Q1

REPORT INFORMATION
  Report Type: Spontaneous
  Country: DE (occurrence: DE)
  Receive Date: 20240206
  Receipt Date: 20240206
  Transmission Date: 20240410
  Serious: Yes (Death, Other)
  Sender: FDA-Public Use
  Company Number: DE-BFARM-24000484

PATIENT
  Sex: Male

DRUGS (1)
  1. APIXABAN [Suspect]
     Active Substance: APIXABAN
     Indication: Atrial fibrillation
     Dosage: 10 MILLIGRAM, ONCE A DAY
     Route: 048
     Dates: start: 202312, end: 202401

REACTIONS (4)
  - Respiratory arrest [Fatal]
  - Cerebral haemorrhage [Fatal]
  - Intracranial pressure increased [Unknown]
  - Cerebral mass effect [Unknown]
